FAERS Safety Report 26095776 (Version 1)
Quarter: 2025Q4

REPORT INFORMATION
  Report Type: Spontaneous
  Country: US (occurrence: US)
  Receive Date: 20251127
  Receipt Date: 20251127
  Transmission Date: 20260119
  Serious: No
  Sender: GALDERMA
  Company Number: US-GALDERMA-US2025023677

PATIENT

DRUGS (1)
  1. NEMLUVIO [Suspect]
     Active Substance: NEMOLIZUMAB-ILTO
     Indication: Neurodermatitis
     Dosage: 60 MILLIGRAM
     Route: 058
     Dates: start: 202510, end: 202510

REACTIONS (3)
  - Arthralgia [Unknown]
  - Back pain [Unknown]
  - Pain in extremity [Unknown]

NARRATIVE: CASE EVENT DATE: 20251101
